FAERS Safety Report 4383197-1 (Version None)
Quarter: 2004Q2

REPORT INFORMATION
  Report Type: 
  Country: None (occurrence: None)
  Receive Date: 20040623
  Receipt Date: 20040406
  Transmission Date: 20050107
  Serious: Yes (Other)
  Sender: FDA-Public Use
  Company Number: PHEH2004US03945

PATIENT
  Age: 50 Year
  Sex: Male
  Weight: 90 kg

DRUGS (5)
  1. LAMISIL [Suspect]
     Indication: NAIL TINEA
     Dosage: 250 MG, QD
     Route: 048
     Dates: start: 19980825, end: 19981125
  2. PRILOSEC [Concomitant]
  3. ZANTAC [Concomitant]
     Indication: DYSPHAGIA
     Dosage: 150 MG, BID
     Route: 048
  4. TRICOR [Concomitant]
     Indication: HYPERLIPIDAEMIA
  5. COUMADIN [Concomitant]

REACTIONS (3)
  - CATARACT [None]
  - CATARACT OPERATION [None]
  - VISION BLURRED [None]
